FAERS Safety Report 7251927-7 (Version None)
Quarter: 2011Q1

REPORT INFORMATION
  Report Type: 
  Country: None (occurrence: None)
  Receive Date: 20110128
  Receipt Date: 20100105
  Transmission Date: 20110831
  Serious: No
  Sender: FDA-Public Use
  Company Number: US-ABBOTT-10P-163-0618517-00

PATIENT
  Sex: Female

DRUGS (4)
  1. LEVEMIR [Concomitant]
     Indication: DIABETES MELLITUS
     Dosage: 20 UNITS AT NIGHT
  2. GLIPIZIDE [Concomitant]
     Indication: DIABETES MELLITUS
  3. HUMIRA [Suspect]
     Indication: RHEUMATOID ARTHRITIS
     Dates: start: 20090714, end: 20091022
  4. METFORMAIN (METFORMIN HYDROCHLORIDE) [Concomitant]
     Indication: DIABETES MELLITUS

REACTIONS (5)
  - INJECTION SITE ERYTHEMA [None]
  - SKIN ULCER [None]
  - INJECTION SITE SWELLING [None]
  - INJECTION SITE NODULE [None]
  - INJECTION SITE WARMTH [None]
